FAERS Safety Report 5078727-0 (Version None)
Quarter: 2006Q3

REPORT INFORMATION
  Report Type: 
  Country: None (occurrence: None)
  Receive Date: 20060720
  Receipt Date: 20060525
  Transmission Date: 20061208
  Serious: Yes (Other)
  Sender: FDA-Public Use
  Company Number: HQWYE618801JUN06

PATIENT
  Age: 46 Year
  Sex: Female
  Weight: 65.83 kg

DRUGS (1)
  1. ADVIL PM [Suspect]
     Indication: SLEEP DISORDER
     Dosage: 1 CAPLET X 1, ORAL
     Route: 048
     Dates: start: 20060525, end: 20060525

REACTIONS (1)
  - PALPITATIONS [None]
